FAERS Safety Report 20176590 (Version 2)
Quarter: 2024Q2

REPORT INFORMATION
  Report Type: Spontaneous
  Country: CA (occurrence: None)
  Receive Date: 20211213
  Receipt Date: 20240503
  Transmission Date: 20240716
  Serious: Yes (Hospitalization)
  Sender: FDA-Public Use
  Company Number: 2021A859555

PATIENT
  Age: 61 Year
  Sex: Female

DRUGS (23)
  1. PULMICORT TURBUHALER [Suspect]
     Active Substance: BUDESONIDE
     Indication: Product used for unknown indication
     Dosage: 2.0 KILOGRAM
     Route: 055
  2. OMEPRAZOLE [Suspect]
     Active Substance: OMEPRAZOLE
     Indication: Product used for unknown indication
     Route: 065
  3. THEOPHYLLINE [Suspect]
     Active Substance: THEOPHYLLINE
     Indication: Product used for unknown indication
     Route: 065
  4. ANORO ELLIPTA [Suspect]
     Active Substance: UMECLIDINIUM BROMIDE\VILANTEROL TRIFENATATE
     Indication: Product used for unknown indication
     Route: 065
  5. ARNUITY ELLIPTA [Suspect]
     Active Substance: FLUTICASONE FUROATE
     Indication: Product used for unknown indication
     Route: 065
  6. ATIVAN [Suspect]
     Active Substance: LORAZEPAM
     Indication: Product used for unknown indication
     Route: 065
  7. ATROVENT [Suspect]
     Active Substance: IPRATROPIUM BROMIDE
     Indication: Product used for unknown indication
     Route: 065
  8. AVELOX [Suspect]
     Active Substance: MOXIFLOXACIN HYDROCHLORIDE
     Indication: Antibiotic therapy
     Route: 065
  9. CLONAZEPAM [Suspect]
     Active Substance: CLONAZEPAM
     Indication: Product used for unknown indication
     Route: 065
  10. COMBIVENT [Suspect]
     Active Substance: ALBUTEROL SULFATE\IPRATROPIUM BROMIDE
     Indication: Product used for unknown indication
     Dosage: 3.0 KILOGRAM
     Route: 065
  11. DEXTROMETHORPHAN [Suspect]
     Active Substance: DEXTROMETHORPHAN
     Indication: Product used for unknown indication
     Route: 065
  12. ERGOCALCIFEROL [Suspect]
     Active Substance: ERGOCALCIFEROL
     Indication: Product used for unknown indication
     Route: 065
  13. HYDROMORPHONE HYDROCHLORIDE [Suspect]
     Active Substance: HYDROMORPHONE HYDROCHLORIDE
     Indication: Product used for unknown indication
     Route: 065
  14. LETROZOLE [Suspect]
     Active Substance: LETROZOLE
     Indication: Product used for unknown indication
     Route: 065
  15. MIOCHOL E [Suspect]
     Active Substance: ACETYLCHOLINE CHLORIDE
     Indication: Product used for unknown indication
     Route: 065
  16. MOMETASONE FUROATE [Suspect]
     Active Substance: MOMETASONE FUROATE
     Indication: Product used for unknown indication
     Route: 065
  17. MUCOMYST [Suspect]
     Active Substance: ACETYLCYSTEINE
     Indication: Product used for unknown indication
     Dosage: INJ 200MG/ML
     Route: 065
  18. PREDNISONE [Suspect]
     Active Substance: PREDNISONE
     Indication: Sinus disorder
     Route: 065
  19. ALBUTEROL [Suspect]
     Active Substance: ALBUTEROL
     Indication: Asthma
     Route: 065
  20. SERTRALINE [Suspect]
     Active Substance: SERTRALINE HYDROCHLORIDE
     Indication: Product used for unknown indication
     Route: 065
  21. TRELEGY ELLIPTA [Suspect]
     Active Substance: FLUTICASONE FUROATE\UMECLIDINIUM BROMIDE\VILANTEROL TRIFENATATE
     Indication: Product used for unknown indication
     Route: 065
  22. TYLENOL [Suspect]
     Active Substance: ACETAMINOPHEN
     Indication: Product used for unknown indication
     Route: 065
  23. VITAMIN D [Suspect]
     Active Substance: VITAMIN D NOS
     Indication: Product used for unknown indication
     Route: 065

REACTIONS (28)
  - Anxiety [Recovered/Resolved]
  - Asthma [Recovered/Resolved]
  - Breast cancer [Recovered/Resolved]
  - Breast conserving surgery [Recovered/Resolved]
  - Chest discomfort [Recovered/Resolved]
  - Chronic obstructive pulmonary disease [Recovered/Resolved]
  - Cough [Recovered/Resolved]
  - Depression [Recovered/Resolved]
  - Dyspnoea [Recovered/Resolved]
  - Eosinophilia [Recovered/Resolved]
  - Full blood count abnormal [Recovered/Resolved]
  - Hypertension [Recovered/Resolved]
  - Loss of personal independence in daily activities [Recovered/Resolved]
  - Malaise [Recovered/Resolved]
  - Mental disorder [Recovered/Resolved]
  - Mental impairment [Recovered/Resolved]
  - Obstruction [Recovered/Resolved]
  - Pneumonia [Recovered/Resolved]
  - Productive cough [Recovered/Resolved]
  - Respiratory disorder [Recovered/Resolved]
  - Rhinorrhoea [Recovered/Resolved]
  - Sinus disorder [Recovered/Resolved]
  - Sinusitis [Recovered/Resolved]
  - Sleep disorder [Recovered/Resolved]
  - Sleep disorder due to a general medical condition [Recovered/Resolved]
  - Therapeutic product effect incomplete [Recovered/Resolved]
  - Tremor [Recovered/Resolved]
  - Wheezing [Recovered/Resolved]
